FAERS Safety Report 5220737-4 (Version None)
Quarter: 2007Q1

REPORT INFORMATION
  Report Type: 
  Country: None (occurrence: None)
  Receive Date: 20070126
  Receipt Date: 20070122
  Transmission Date: 20070707
  Serious: Yes (Hospitalization)
  Sender: FDA-Public Use
  Company Number: JP-AVENTIS-200710069JP

PATIENT
  Age: 84 Year
  Sex: Female

DRUGS (1)
  1. EUGLUCON [Suspect]
     Indication: DIABETES MELLITUS
     Route: 048

REACTIONS (2)
  - CONVULSION [None]
  - HYPOGLYCAEMIC COMA [None]
